FAERS Safety Report 18940726 (Version 11)
Quarter: 2021Q3

REPORT INFORMATION
  Report Type: Spontaneous
  Country: AR (occurrence: AR)
  Receive Date: 20210225
  Receipt Date: 20210712
  Transmission Date: 20211014
  Serious: Yes (Other)
  Sender: FDA-Public Use
  Company Number: AR-PFIZER INC-2021192097

PATIENT
  Age: 80 Year
  Sex: Male
  Weight: 63 kg

DRUGS (12)
  1. ELIQUIS [Suspect]
     Active Substance: APIXABAN
     Indication: ATRIAL FIBRILLATION
     Dosage: 2.5 MG, 2X/DAY
     Route: 065
     Dates: start: 201607
  2. ELIQUIS [Suspect]
     Active Substance: APIXABAN
     Indication: CEREBROVASCULAR ACCIDENT PROPHYLAXIS
     Dosage: 5 MG
     Dates: start: 20140601
  3. AMIODARONE [Suspect]
     Active Substance: AMIODARONE
     Dosage: UNK, DAILY
  4. LEXTOR [Suspect]
     Active Substance: ESCITALOPRAM OXALATE
     Dosage: UNK
  5. EXFORGE [Suspect]
     Active Substance: AMLODIPINE BESYLATE\VALSARTAN
     Dosage: UNK
  6. ELIQUIS [Suspect]
     Active Substance: APIXABAN
     Indication: COAGULOPATHY
  7. PREGABALIN. [Suspect]
     Active Substance: PREGABALIN
     Dosage: UNK, DAILY
  8. ALPLAX [Suspect]
     Active Substance: ALPRAZOLAM
     Indication: CEREBROVASCULAR ACCIDENT PROPHYLAXIS
     Dosage: UNK, DAILY
  9. ROSUVASTATIN. [Suspect]
     Active Substance: ROSUVASTATIN
     Dosage: UNK, DAILY
  10. NOSTER [AMLODIPINE BESILATE;VALSARTAN] [Suspect]
     Active Substance: AMLODIPINE BESYLATE\VALSARTAN
     Dosage: UNK, DAILY
  11. EX3 [Suspect]
     Active Substance: ESCITALOPRAM OXALATE
     Dosage: UNK
  12. ESCITALOPRAM OXALATE. [Suspect]
     Active Substance: ESCITALOPRAM OXALATE
     Dosage: UNK, DAILY

REACTIONS (28)
  - Monocyte count increased [Recovered/Resolved]
  - Creatinine renal clearance decreased [Unknown]
  - Depression [Unknown]
  - Activated partial thromboplastin time shortened [Recovered/Resolved]
  - Blood cholesterol decreased [Unknown]
  - Red blood cell count decreased [Recovered/Resolved]
  - Blood cholesterol increased [Recovered/Resolved]
  - Platelet count decreased [Unknown]
  - Neutrophil count decreased [Unknown]
  - Glycosylated haemoglobin increased [Unknown]
  - Renal impairment [Unknown]
  - Low density lipoprotein increased [Recovered/Resolved]
  - Aortic aneurysm [Unknown]
  - Anxiety [Unknown]
  - Haematocrit decreased [Unknown]
  - Blood creatinine increased [Unknown]
  - Prothrombin time shortened [Unknown]
  - Arrhythmia [Unknown]
  - Blood urea increased [Unknown]
  - Monocyte count decreased [Recovered/Resolved]
  - Bilirubin conjugated increased [Recovered/Resolved]
  - Tachycardia [Unknown]
  - Essential hypertension [Unknown]
  - Blood parathyroid hormone increased [Unknown]
  - Oedema peripheral [Unknown]
  - Atrial fibrillation [Unknown]
  - Eosinophil count increased [Unknown]
  - Blood 25-hydroxycholecalciferol decreased [Unknown]

NARRATIVE: CASE EVENT DATE: 201610
